FAERS Safety Report 21316037 (Version 1)
Quarter: 2022Q3

REPORT INFORMATION
  Report Type: Spontaneous
  Country: CN (occurrence: CN)
  Receive Date: 20220910
  Receipt Date: 20220910
  Transmission Date: 20221027
  Serious: Yes (Hospitalization)
  Sender: FDA-Public Use
  Company Number: CN-009507513-2209CHN002473

PATIENT
  Age: 90 Year
  Sex: Male

DRUGS (3)
  1. CILASTATIN SODIUM\IMIPENEM [Suspect]
     Active Substance: CILASTATIN SODIUM\IMIPENEM
     Indication: Anti-infective therapy
     Dosage: 1 GRAM, BID
     Route: 041
     Dates: start: 20220824, end: 20220901
  2. VANCOMYCIN [Concomitant]
     Active Substance: VANCOMYCIN
     Indication: Anti-infective therapy
     Dosage: 0.5 GRAM, QD
     Route: 041
     Dates: start: 20220829, end: 20220901
  3. PIPERACILLIN SODIUM\TAZOBACTAM SODIUM [Concomitant]
     Active Substance: PIPERACILLIN SODIUM\TAZOBACTAM SODIUM
     Dosage: UNK
     Dates: end: 20220901

REACTIONS (7)
  - Dysbiosis [Recovering/Resolving]
  - C-reactive protein increased [Unknown]
  - Neutrophil percentage increased [Unknown]
  - White blood cell count increased [Unknown]
  - Staphylococcus test positive [Unknown]
  - Diarrhoea [Unknown]
  - Product use issue [Unknown]

NARRATIVE: CASE EVENT DATE: 20220824
